FAERS Safety Report 5654321-5 (Version None)
Quarter: 2008Q1

REPORT INFORMATION
  Report Type: 
  Country: None (occurrence: None)
  Receive Date: 20080306
  Receipt Date: 20080303
  Transmission Date: 20080703
  Serious: Yes (Hospitalization)
  Sender: FDA-Public Use
  Company Number: US-MERCK-0803USA00551

PATIENT
  Age: 82 Year
  Sex: Female

DRUGS (6)
  1. ZOCOR [Suspect]
     Indication: HYPERCHOLESTEROLAEMIA
     Route: 048
     Dates: end: 20071201
  2. SYNTHROID [Concomitant]
     Route: 065
  3. CYMBALTA [Concomitant]
     Route: 065
  4. WELLBUTRIN [Concomitant]
     Route: 065
  5. FEXOFENADINE HYDROCHLORIDE [Concomitant]
     Route: 065
  6. VYTORIN [Suspect]
     Indication: HYPERCHOLESTEROLAEMIA
     Route: 048

REACTIONS (5)
  - CYSTITIS [None]
  - KIDNEY INFECTION [None]
  - MYALGIA [None]
  - PAIN IN EXTREMITY [None]
  - RENAL IMPAIRMENT [None]
